FAERS Safety Report 10114592 (Version 3)
Quarter: 2014Q2

REPORT INFORMATION
  Report Type: Report from Study
  Country: NO (occurrence: NO)
  Receive Date: 20140426
  Receipt Date: 20140430
  Transmission Date: 20141212
  Serious: Yes (Hospitalization)
  Sender: FDA-Public Use
  Company Number: NO-MERCK-1404NOR009087

PATIENT
  Age: 64 Year
  Sex: Female

DRUGS (7)
  1. PEGINTERFERON ALFA-2B [Suspect]
     Indication: CHRONIC MYELOID LEUKAEMIA
     Dosage: 15 MICROGRAM, QW
     Dates: end: 20140414
  2. DASATINIB [Suspect]
     Indication: CHRONIC MYELOID LEUKAEMIA
     Dosage: 100 MG, QD
  3. EZETROL [Concomitant]
     Dosage: 10 MG X1
     Route: 048
  4. LIPITOR [Concomitant]
     Dosage: 80 MG X1
  5. SELO-ZOK [Concomitant]
     Dosage: 50 MG X1
  6. SELO-ZOK [Concomitant]
     Dosage: 25  MG,QD
  7. CANDESARTAN CILEXETIL [Concomitant]
     Dosage: 16 MG/12.5 MG X 1

REACTIONS (2)
  - Bradycardia [Recovered/Resolved]
  - Atrial fibrillation [Recovered/Resolved]
